FAERS Safety Report 4560543-7 (Version None)
Quarter: 2005Q1

REPORT INFORMATION
  Report Type: 
  Country: None (occurrence: None)
  Receive Date: 20050125
  Receipt Date: 20041203
  Transmission Date: 20050727
  Serious: Yes (Other)
  Sender: FDA-Public Use
  Company Number: CH-GLAXOSMITHKLINE-B0360084A

PATIENT
  Age: 61 Year
  Sex: Male

DRUGS (4)
  1. ZIAGEN [Suspect]
     Indication: HIV INFECTION
     Dosage: 300MG TWICE PER DAY
     Route: 048
     Dates: start: 20041101, end: 20041203
  2. BACTRIM [Concomitant]
     Indication: DRUG USE FOR UNKNOWN INDICATION
     Route: 048
  3. VIRACEPT [Concomitant]
     Indication: HIV INFECTION
     Route: 048
  4. REYATAZ [Concomitant]
     Indication: HIV INFECTION
     Route: 065

REACTIONS (1)
  - PANCYTOPENIA [None]
